FAERS Safety Report 7394126-0 (Version None)
Quarter: 2011Q2

REPORT INFORMATION
  Report Type: 
  Country: None (occurrence: None)
  Receive Date: 20110405
  Receipt Date: 20110309
  Transmission Date: 20111010
  Serious: Yes (Other)
  Sender: FDA-Public Use
  Company Number: NO-ELI_LILLY_AND_COMPANY-NO201103004044

PATIENT
  Age: 24 Year
  Sex: Female

DRUGS (1)
  1. STRATTERA [Suspect]
     Indication: ATTENTION DEFICIT/HYPERACTIVITY DISORDER
     Dosage: 1 DF, UNK

REACTIONS (8)
  - SYNCOPE [None]
  - NAUSEA [None]
  - FATIGUE [None]
  - INSOMNIA [None]
  - THROAT TIGHTNESS [None]
  - INFLUENZA LIKE ILLNESS [None]
  - PYREXIA [None]
  - MALAISE [None]
